FAERS Safety Report 10472069 (Version 3)
Quarter: 2021Q3

REPORT INFORMATION
  Report Type: Spontaneous
  Country: GB (occurrence: GB)
  Receive Date: 20140924
  Receipt Date: 20210826
  Transmission Date: 20211014
  Serious: Yes (Hospitalization, Other)
  Sender: FDA-Public Use
  Company Number: GB-ACCORD-026026

PATIENT
  Age: 78 Year
  Sex: Male

DRUGS (5)
  1. RAMIPRIL. [Suspect]
     Active Substance: RAMIPRIL
     Indication: HYPERTENSION
     Dosage: LONG TERM USE OF RAMIPRIL
     Route: 048
     Dates: end: 20140905
  2. BISOPROLOL [Concomitant]
     Active Substance: BISOPROLOL
  3. WARFARIN [Concomitant]
     Active Substance: WARFARIN
  4. TRIMETHOPRIM/TRIMETHOPRIM LACTATE/TRIMETHOPRIM SULFATE [Suspect]
     Active Substance: TRIMETHOPRIM
     Indication: URINARY TRACT INFECTION
     Dosage: ACUTE COURSE OF TRIMETHOPRIM
     Route: 048
     Dates: end: 20140905
  5. BUMETANIDE. [Concomitant]
     Active Substance: BUMETANIDE

REACTIONS (3)
  - Hyperkalaemia [Not Recovered/Not Resolved]
  - Acute kidney injury [Recovering/Resolving]
  - Dehydration [Recovered/Resolved]

NARRATIVE: CASE EVENT DATE: 20140905
